FAERS Safety Report 4476921-0 (Version None)
Quarter: 2004Q4

REPORT INFORMATION
  Report Type: 
  Country: None (occurrence: None)
  Receive Date: 20041013
  Receipt Date: 20040927
  Transmission Date: 20050328
  Serious: Yes (Other)
  Sender: FDA-Public Use
  Company Number: GBS040915656

PATIENT
  Age: 13 Year
  Sex: Male
  Weight: 47 kg

DRUGS (5)
  1. STRATTERA [Suspect]
     Indication: ATTENTION DEFICIT/HYPERACTIVITY DISORDER
     Dosage: 70 MG DAY
     Dates: start: 20040903, end: 20040914
  2. CLONIDINE HCL [Concomitant]
  3. FLUOXETINE [Concomitant]
  4. METHYLPHENIDATE HCL [Concomitant]
  5. EQUASYM (METHYLPHENIDATE HYDROCHLORIDE) [Concomitant]

REACTIONS (2)
  - ANTISOCIAL BEHAVIOUR [None]
  - MANIA [None]
